FAERS Safety Report 24623589 (Version 1)
Quarter: 2024Q4

REPORT INFORMATION
  Report Type: Spontaneous
  Country: CN (occurrence: CN)
  Receive Date: 20241115
  Receipt Date: 20241115
  Transmission Date: 20250114
  Serious: Yes (Other)
  Sender: RANBAXY
  Company Number: CN-SUN PHARMACEUTICAL INDUSTRIES LTD-2024R1-479191

PATIENT
  Age: 62 Year
  Sex: Female
  Weight: 70 kg

DRUGS (3)
  1. PEMETREXED [Suspect]
     Active Substance: PEMETREXED
     Indication: Pericardial mesothelioma malignant
     Dosage: UNK (500 MG/M2, EVERY 3 WEEKS)
     Route: 065
     Dates: start: 20230907, end: 20240119
  2. CARBOPLATIN [Suspect]
     Active Substance: CARBOPLATIN
     Indication: Pericardial mesothelioma malignant
     Dosage: UNK (AUC = 5,EVERY 3 WEEKS)
     Route: 065
     Dates: start: 20230907, end: 20240119
  3. PEMBROLIZUMAB [Suspect]
     Active Substance: PEMBROLIZUMAB
     Indication: Pericardial mesothelioma malignant
     Dosage: UNK (200 MG,EVERY 3 WEEKS)
     Route: 065
     Dates: start: 20230907, end: 20240119

REACTIONS (6)
  - Therapeutic response decreased [Unknown]
  - Myelosuppression [Unknown]
  - Nausea [Unknown]
  - Fatigue [Unknown]
  - Vomiting [Unknown]
  - Abdominal discomfort [Unknown]
